FAERS Safety Report 4429808-3 (Version None)
Quarter: 2004Q3

REPORT INFORMATION
  Report Type: 
  Country: None (occurrence: None)
  Receive Date: 20040816
  Receipt Date: 20040803
  Transmission Date: 20050211
  Serious: Yes (Death, Life-Threatening, Hospitalization)
  Sender: FDA-Public Use
  Company Number: 2004053294

PATIENT
  Age: 53 Year
  Sex: Male

DRUGS (13)
  1. ZOLOFT [Suspect]
     Indication: DEPRESSION
  2. INSULIN [Suspect]
     Indication: DIABETES MELLITUS
  3. INSULIN  LISPRO (INSULIN LISPRO) [Suspect]
     Indication: DIABETES MELLITUS
  4. FUROSEMIDE [Suspect]
     Indication: HYPERTENSION
  5. METOLAZONE [Concomitant]
     Indication: FLUID RETENTION
  6. CLOPIDOGREL BISULFATE [Concomitant]
     Indication: THROMBOSIS
  7. TELMISARTAN (TELMISARTAN) [Concomitant]
  8. LOSARTAN POTASSIUM [Concomitant]
  9. METOPROLOL SUCCINATE [Concomitant]
  10. ISOSORBIDE (ISOSORBIDE) [Concomitant]
  11. SODIUM BICARBONATE IN PLASTIC CONTAINER [Concomitant]
  12. GABAPENTIN [Concomitant]
  13. BUTORPHANOL TARATRATE [Concomitant]

REACTIONS (4)
  - CARDIAC ARREST [None]
  - CARDIAC FAILURE CONGESTIVE [None]
  - PNEUMONIA [None]
  - RENAL FAILURE CHRONIC [None]
